FAERS Safety Report 5345061-0 (Version None)
Quarter: 2007Q2

REPORT INFORMATION
  Report Type: 
  Country: None (occurrence: None)
  Receive Date: 20070426
  Receipt Date: 20060713
  Transmission Date: 20071010
  Serious: Yes (Other)
  Sender: FDA-Public Use
  Company Number: 2006057233

PATIENT
  Age: 36 Year
  Sex: Female
  Weight: 122.4712 kg

DRUGS (11)
  1. GENOTROPIN [Suspect]
     Indication: HYPOPITUITARISM
     Dosage: (DAILY INTERVAL: EVERY DAY), SUBCUTANEOUS
     Route: 058
     Dates: start: 20030801
  2. SYNTHROID [Concomitant]
  3. DDAVP [Concomitant]
  4. ESTROGENIC SUBSTANCE [Concomitant]
  5. OVCON (ETHINYLESTRADIOL, NORETHISTERONE) [Concomitant]
  6. CORTEF [Concomitant]
  7. SINGULAIR [Concomitant]
  8. ZYRTEC [Concomitant]
  9. NEXIUM [Concomitant]
  10. PREVACID [Concomitant]
  11. MULTI-VITAMINS [Concomitant]

REACTIONS (1)
  - DIABETES MELLITUS NON-INSULIN-DEPENDENT [None]
